FAERS Safety Report 5894079-8 (Version None)
Quarter: 2008Q3

REPORT INFORMATION
  Report Type: 
  Country: None (occurrence: None)
  Receive Date: 20080923
  Receipt Date: 20071213
  Transmission Date: 20090109
  Serious: No
  Sender: FDA-Public Use
  Company Number: US-ASTRAZENECA-2007UW28369

PATIENT
  Age: 34 Year
  Sex: Female

DRUGS (3)
  1. SEROQUEL [Suspect]
     Route: 048
     Dates: start: 20070501
  2. ASPIRIN [Concomitant]
  3. ALBUTEROL [Concomitant]

REACTIONS (1)
  - ELECTROCARDIOGRAM ABNORMAL [None]
